FAERS Safety Report 16404930 (Version 2)
Quarter: 2019Q2

REPORT INFORMATION
  Report Type: Spontaneous
  Country: IT (occurrence: IT)
  Receive Date: 20190607
  Receipt Date: 20190626
  Transmission Date: 20190711
  Serious: Yes (Hospitalization, Other)
  Sender: FDA-Public Use
  Company Number: IT-MYLANLABS-2019M1053100

PATIENT
  Age: 20 Year
  Sex: Female
  Weight: 38 kg

DRUGS (1)
  1. VORICONAZOLE. [Suspect]
     Active Substance: VORICONAZOLE
     Indication: ASPERGILLUS INFECTION
     Dosage: 100 MILLIGRAM, BID
     Route: 048

REACTIONS (4)
  - Therapy partial responder [Unknown]
  - Drug level increased [Recovered/Resolved]
  - Drug abuse [Unknown]
  - Hepatotoxicity [Recovered/Resolved]
